FAERS Safety Report 14085430 (Version 2)
Quarter: 2018Q4

REPORT INFORMATION
  Report Type: Report from Study
  Country: JP (occurrence: JP)
  Receive Date: 20171013
  Receipt Date: 20181005
  Transmission Date: 20190204
  Serious: No
  Sender: FDA-Public Use
  Company Number: JP-VIFOR (INTERNATIONAL) INC.-VIT-2017-10416

PATIENT
  Age: 67 Year
  Sex: Male
  Weight: 79.9 kg

DRUGS (4)
  1. EPOETIN ALFA [Concomitant]
     Active Substance: ERYTHROPOIETIN
  2. ROCALTROL [Concomitant]
     Active Substance: CALCITRIOL
     Route: 048
     Dates: end: 20161205
  3. NEOPHAGEN [Concomitant]
     Active Substance: GLYCYRRHIZIN
  4. VELPHORO [Suspect]
     Active Substance: FERRIC OXYHYDROXIDE
     Indication: HYPERPHOSPHATAEMIA
     Route: 048
     Dates: start: 20161128, end: 20170123

REACTIONS (1)
  - Rash [Recovering/Resolving]

NARRATIVE: CASE EVENT DATE: 20170120
